FAERS Safety Report 6438745-4 (Version None)
Quarter: 2009Q4

REPORT INFORMATION
  Report Type: 
  Country: None (occurrence: None)
  Receive Date: 20091113
  Receipt Date: 20091102
  Transmission Date: 20100525
  Serious: Yes (Hospitalization, Other)
  Sender: FDA-Public Use
  Company Number: US-JNJFOC-20090901761

PATIENT
  Sex: Female

DRUGS (1)
  1. SIMPONI [Suspect]
     Indication: PSORIATIC ARTHROPATHY
     Route: 058

REACTIONS (4)
  - DYSPNOEA [None]
  - IMMEDIATE POST-INJECTION REACTION [None]
  - PHARYNGEAL OEDEMA [None]
  - WHEEZING [None]
